FAERS Safety Report 8461209-3 (Version None)
Quarter: 2012Q2

REPORT INFORMATION
  Report Type: 
  Country: None (occurrence: None)
  Receive Date: 20120618
  Receipt Date: 20120618
  Transmission Date: 20120825
  Serious: Yes (Hospitalization)
  Sender: FDA-Public Use
  Company Number: None

PATIENT
  Age: 84 Year
  Sex: Male
  Weight: 72.5755 kg

DRUGS (2)
  1. AMBISOME [Suspect]
     Indication: ZYGOMYCOSIS
     Dosage: 360MG EVERY MON, WED. FRI IV DRIP
     Route: 041
     Dates: start: 20120611, end: 20120611
  2. AMBISOME [Suspect]
     Indication: SPOROTRICHOSIS
     Dosage: 360MG EVERY MON, WED. FRI IV DRIP
     Route: 041
     Dates: start: 20120611, end: 20120611

REACTIONS (3)
  - FLUSHING [None]
  - HEART RATE INCREASED [None]
  - DYSPNOEA [None]
